FAERS Safety Report 24002084 (Version 1)
Quarter: 2024Q2

REPORT INFORMATION
  Report Type: Spontaneous
  Country: ZA (occurrence: None)
  Receive Date: 20240622
  Receipt Date: 20240622
  Transmission Date: 20240715
  Serious: Yes (Hospitalization)
  Sender: FDA-Public Use
  Company Number: 2024A139222

PATIENT
  Age: 78 Year
  Sex: Female

DRUGS (7)
  1. DAPAGLIFLOZIN PROPANEDIOL [Suspect]
     Active Substance: DAPAGLIFLOZIN PROPANEDIOL
     Indication: Diabetes mellitus
     Dosage: UNKNOWN
     Route: 048
  2. BISOPROLOL FUMARATE [Concomitant]
     Active Substance: BISOPROLOL FUMARATE
     Indication: Hypertension
  3. STILPANE [Concomitant]
     Indication: Pain
  4. IXAROLA 15 MG [Concomitant]
     Indication: Thrombosis
  5. LIPOGEN 80 MG [Concomitant]
     Indication: Blood cholesterol
  6. FLORIN 250 MG [Concomitant]
  7. BUDAIR 0.5 MG [Concomitant]
     Indication: Rhinitis allergic

REACTIONS (8)
  - Cardiac disorder [Unknown]
  - Asthenia [Unknown]
  - Gait inability [Unknown]
  - Balance disorder [Unknown]
  - Feeding disorder [Unknown]
  - Decreased appetite [Unknown]
  - Diarrhoea [Unknown]
  - Malaise [Unknown]
